FAERS Safety Report 5739153-1 (Version None)
Quarter: 2008Q2

REPORT INFORMATION
  Report Type: 
  Country: None (occurrence: None)
  Receive Date: 20080515
  Receipt Date: 20080508
  Transmission Date: 20081010
  Serious: Yes (Other)
  Sender: FDA-Public Use
  Company Number: B0498805A

PATIENT
  Sex: Female

DRUGS (2)
  1. PAROXETINE HCL [Suspect]
     Indication: DRUG USE FOR UNKNOWN INDICATION
     Dates: start: 20010625, end: 20020101
  2. CITALOPRAM HYDROBROMIDE [Concomitant]
     Dates: start: 20030108

REACTIONS (18)
  - AGGRESSION [None]
  - DIARRHOEA [None]
  - DISTURBANCE IN ATTENTION [None]
  - DRUG WITHDRAWAL SYNDROME [None]
  - FEELING ABNORMAL [None]
  - GASTRIC DISORDER [None]
  - HEADACHE [None]
  - HYPERHIDROSIS [None]
  - INFECTION [None]
  - INFLUENZA LIKE ILLNESS [None]
  - MELANOCYTIC NAEVUS [None]
  - MEMORY IMPAIRMENT [None]
  - NAUSEA [None]
  - PAIN [None]
  - PAIN IN EXTREMITY [None]
  - SOMNOLENCE [None]
  - VISUAL DISTURBANCE [None]
  - WEIGHT INCREASED [None]
